FAERS Safety Report 8310498-4 (Version None)
Quarter: 2012Q2

REPORT INFORMATION
  Report Type: 
  Country: None (occurrence: None)
  Receive Date: 20120425
  Receipt Date: 20120417
  Transmission Date: 20120825
  Serious: Yes (Hospitalization)
  Sender: FDA-Public Use
  Company Number: US-ROXANE LABORATORIES, INC.-2012-RO-01075RO

PATIENT
  Age: 58 Year
  Sex: Female

DRUGS (5)
  1. CALCIUM CARBONATE [Suspect]
     Indication: OSTEOPOROSIS
     Dosage: 2020 MG
     Dates: start: 20030101
  2. CHOLECALCIFEROL [Suspect]
     Indication: OSTEOPOROSIS
     Dosage: 5500 U
     Dates: start: 20090301
  3. 4-AMINOPYRIDINE [Suspect]
     Indication: OSTEOPOROSIS
     Dosage: 40 MG
  4. ZOLEDRONIC [Suspect]
     Indication: OSTEOPOROSIS
     Dates: end: 20100901
  5. CHOLECALCIFEROL [Suspect]
     Dates: start: 20030101, end: 20090301

REACTIONS (1)
  - HYPERCALCAEMIA [None]
